FAERS Safety Report 5167881-8 (Version None)
Quarter: 2006Q4

REPORT INFORMATION
  Report Type: 
  Country: None (occurrence: None)
  Receive Date: 20061208
  Receipt Date: 20051220
  Transmission Date: 20070319
  Serious: Yes (Hospitalization)
  Sender: FDA-Public Use
  Company Number: US-JNJFOC-20050501613

PATIENT
  Sex: Female
  Weight: 68.04 kg

DRUGS (17)
  1. SCIO-469 [Suspect]
     Indication: RHEUMATOID ARTHRITIS
     Dosage: 2 CAPSULES THREE TIMES A DAY AND ONE TABLET DAILY, A COMBINATION OF STUDY DRUG AND PLACEBO
     Route: 048
     Dates: start: 20041213, end: 20050501
  2. REMICADE [Suspect]
     Indication: COLITIS
  3. SYNTHROID [Concomitant]
     Indication: HYPOTHYROIDISM
     Route: 048
  4. ATENOLOL [Concomitant]
     Indication: ATRIAL FIBRILLATION
     Route: 048
  5. NORVASC [Concomitant]
     Indication: HYPERTENSION
     Route: 048
  6. PRAVACHOL [Concomitant]
     Indication: PROPHYLAXIS
     Route: 048
  7. ASPIRIN [Concomitant]
     Indication: RHEUMATOID ARTHRITIS
     Route: 048
  8. ENDOCORT [Concomitant]
     Indication: RHEUMATOID ARTHRITIS
     Route: 048
  9. HYDROCHLOROTHIAZIDE [Concomitant]
     Indication: OEDEMA
     Route: 048
  10. FOLIC ACID [Concomitant]
     Indication: NUTRITIONAL SUPPORT
     Route: 048
  11. ALTACE [Concomitant]
  12. PLAVIX [Concomitant]
  13. CORDARONE [Concomitant]
  14. ZETIA [Concomitant]
  15. PREDNISONE TAB [Concomitant]
  16. ZOCOR [Concomitant]
  17. COREG [Concomitant]

REACTIONS (3)
  - CARDIAC FAILURE CONGESTIVE [None]
  - DUODENAL ULCER [None]
  - MYOCARDIAL INFARCTION [None]
